FAERS Safety Report 18385058 (Version 2)
Quarter: 2020Q4

REPORT INFORMATION
  Report Type: Spontaneous
  Country: US (occurrence: US)
  Receive Date: 20201014
  Receipt Date: 20201211
  Transmission Date: 20210114
  Serious: Yes (Death)
  Sender: FDA-Public Use
  Company Number: US-ROCHE-2695479

PATIENT
  Sex: Female

DRUGS (2)
  1. AVASTIN [Suspect]
     Active Substance: BEVACIZUMAB
     Indication: CHOROIDAL NEOVASCULARISATION
  2. AVASTIN [Suspect]
     Active Substance: BEVACIZUMAB
     Indication: NEOVASCULAR AGE-RELATED MACULAR DEGENERATION
     Dosage: SDV (4ML/VL) 25MG/ML
     Route: 050
     Dates: start: 20150805

REACTIONS (3)
  - Off label use [Fatal]
  - Intentional product use issue [Fatal]
  - Death [Fatal]
